FAERS Safety Report 5018871-7 (Version None)
Quarter: 2006Q2

REPORT INFORMATION
  Report Type: 
  Country: None (occurrence: None)
  Receive Date: 20060530
  Receipt Date: 20050711
  Transmission Date: 20061013
  Serious: Yes (Other)
  Sender: FDA-Public Use
  Company Number: 2005099824

PATIENT
  Age: 60 Year
  Sex: Female
  Weight: 69.8 kg

DRUGS (6)
  1. LYRICA [Suspect]
     Indication: BACK PAIN
     Dosage: 225 MG (75 MG, 3 IN 1 D), ORAL
     Route: 048
     Dates: start: 20040820, end: 20041230
  2. ATENOLOL [Concomitant]
  3. ASPIRIN [Concomitant]
  4. AMITRIPTYLINE HCL [Concomitant]
  5. FLUVASTATIN (FLUVASTATIN) [Concomitant]
  6. ISMO [Concomitant]

REACTIONS (1)
  - COUGH [None]
